FAERS Safety Report 8553296-9 (Version None)
Quarter: 2012Q3

REPORT INFORMATION
  Report Type: 
  Country: None (occurrence: None)
  Receive Date: 20120731
  Receipt Date: 20120724
  Transmission Date: 20120928
  Serious: Yes (Hospitalization, Other)
  Sender: FDA-Public Use
  Company Number: FR-PFIZER INC-2012173147

PATIENT
  Age: 79 Year
  Sex: Female

DRUGS (5)
  1. ASPIRIN [Concomitant]
     Dosage: UNK
  2. ENALAPRIL [Concomitant]
     Dosage: UNK
  3. ATORVASTATIN [Suspect]
     Dosage: 20 MG, 1X/DAY
     Route: 048
     Dates: start: 20070101, end: 20110715
  4. INDAPAMIDE [Concomitant]
     Dosage: UNK
  5. DILTIAZEM HCL [Concomitant]
     Dosage: UNK

REACTIONS (5)
  - HYPOTENSION [None]
  - RESPIRATORY DISTRESS [None]
  - PRESYNCOPE [None]
  - INTERSTITIAL LUNG DISEASE [None]
  - ELECTROCARDIOGRAM ST SEGMENT DEPRESSION [None]
